FAERS Safety Report 19269710 (Version 1)
Quarter: 2021Q2

REPORT INFORMATION
  Report Type: Report from Study
  Country: CA (occurrence: CA)
  Receive Date: 20210518
  Receipt Date: 20210518
  Transmission Date: 20210717
  Serious: Yes (Other)
  Sender: FDA-Public Use
  Company Number: CA-NALPROPION PHARMACEUTICALS INC.-2021-012341

PATIENT

DRUGS (7)
  1. CONTRAVE [Suspect]
     Active Substance: BUPROPION HYDROCHLORIDE\NALTREXONE HYDROCHLORIDE
     Indication: WEIGHT CONTROL
     Dosage: STRENGTH: 90 MG/8 MG 1 TAB IN THE MORNING
     Route: 048
     Dates: start: 20210118, end: 20210124
  2. CONTRAVE [Suspect]
     Active Substance: BUPROPION HYDROCHLORIDE\NALTREXONE HYDROCHLORIDE
     Dosage: STRENGTH: 90 MG/8 MG 2 TAB IN THE MORNING AND 2 IN THE EVENING
     Route: 048
     Dates: start: 20210208
  3. CONTRAVE [Suspect]
     Active Substance: BUPROPION HYDROCHLORIDE\NALTREXONE HYDROCHLORIDE
     Dosage: STRENGTH: 90 MG/8 MG 2 TAB IN THE MORNING AND 1 IN THE EVENING
     Route: 048
     Dates: start: 20210201, end: 20210207
  4. SYNTHROID [Concomitant]
     Active Substance: LEVOTHYROXINE SODIUM
     Indication: HYPOTHYROIDISM
     Dosage: 1 IN 1 D
     Route: 048
  5. ALCOHOL. [Concomitant]
     Active Substance: ALCOHOL
     Indication: PRODUCT USED FOR UNKNOWN INDICATION
     Dosage: UNK
     Route: 065
  6. CONTRAVE [Suspect]
     Active Substance: BUPROPION HYDROCHLORIDE\NALTREXONE HYDROCHLORIDE
     Dosage: STRENGTH: 90 MG/8 MG 1 TAB IN THE MORNING AND 1 IN THE EVENING
     Route: 048
     Dates: start: 20210125, end: 20210131
  7. NAPROXEN. [Concomitant]
     Active Substance: NAPROXEN
     Indication: PAIN
     Dosage: 1 IN 1 D
     Route: 048

REACTIONS (10)
  - Agitation [Unknown]
  - Product dose omission in error [Unknown]
  - Haematochezia [Not Recovered/Not Resolved]
  - Middle insomnia [Recovered/Resolved]
  - Constipation [Recovering/Resolving]
  - Dyspepsia [Unknown]
  - Feeling abnormal [Unknown]
  - Nausea [Recovered/Resolved]
  - Fatigue [Not Recovered/Not Resolved]
  - Stress at work [Not Recovered/Not Resolved]

NARRATIVE: CASE EVENT DATE: 20210307
